FAERS Safety Report 16561973 (Version 2)
Quarter: 2020Q2

REPORT INFORMATION
  Report Type: Spontaneous
  Country: US (occurrence: US)
  Receive Date: 20190711
  Receipt Date: 20200526
  Transmission Date: 20200713
  Serious: No
  Sender: FDA-Public Use
  Company Number: US-TEVA-2019-US-1065938

PATIENT
  Age: 85 Year
  Sex: Female

DRUGS (6)
  1. TRAMADOL GENERIC [Concomitant]
     Route: 065
  2. LIDOCAINE TOPICAL 5% PATCH [Suspect]
     Active Substance: LIDOCAINE
     Indication: ARTHRITIS
     Route: 062
     Dates: start: 2015
  3. LIDOCAINE TOPICAL 5% PATCH [Suspect]
     Active Substance: LIDOCAINE
     Indication: ARTHRALGIA
  4. LIDOCAINE TOPICAL 5% PATCH [Suspect]
     Active Substance: LIDOCAINE
     Indication: ARTHRALGIA
  5. VALIUM [Concomitant]
     Active Substance: DIAZEPAM
     Dosage: SPLITS IN HALF AT BEDTIME
     Route: 065
  6. MELATONIN [Concomitant]
     Active Substance: MELATONIN
     Route: 065

REACTIONS (3)
  - Intentional product misuse [Unknown]
  - Product use in unapproved indication [Unknown]
  - Product prescribing error [Unknown]

NARRATIVE: CASE EVENT DATE: 201906
